FAERS Safety Report 7993276-5 (Version None)
Quarter: 2011Q4

REPORT INFORMATION
  Report Type: 
  Country: None (occurrence: None)
  Receive Date: 20111219
  Receipt Date: 20110801
  Transmission Date: 20120403
  Serious: No
  Sender: FDA-Public Use
  Company Number: US-ASTRAZENECA-2011SE27108

PATIENT
  Age: 59 Year
  Sex: Male

DRUGS (4)
  1. MILD TRANQUILIZER [Concomitant]
  2. SLEEP AIDS [Concomitant]
  3. CRESTOR [Suspect]
     Route: 048
  4. MILD PAIN PILL [Concomitant]

REACTIONS (2)
  - PARAESTHESIA [None]
  - DRY MOUTH [None]
